FAERS Safety Report 10513232 (Version 2)
Quarter: 2014Q4

REPORT INFORMATION
  Report Type: Spontaneous
  Country: US (occurrence: US)
  Receive Date: 20141013
  Receipt Date: 20141013
  Transmission Date: 20150528
  Serious: Yes (Hospitalization)
  Sender: FDA-Public Use
  Company Number: US-AUROBINDO-AUR-APL-2014-10244

PATIENT

DRUGS (1)
  1. DULOXETINE HYDROCHLORIDE 60 MG [Suspect]
     Active Substance: DULOXETINE HYDROCHLORIDE
     Indication: DEPRESSION
     Dosage: 60 MG, ONCE A DAY
     Route: 065
     Dates: start: 201312

REACTIONS (3)
  - Product substitution issue [Unknown]
  - Suicidal ideation [Unknown]
  - Drug ineffective [Unknown]
